FAERS Safety Report 13014740 (Version 3)
Quarter: 2017Q1

REPORT INFORMATION
  Report Type: Spontaneous
  Country: JP (occurrence: JP)
  Receive Date: 20161209
  Receipt Date: 20170110
  Transmission Date: 20170428
  Serious: Yes (Other)
  Sender: FDA-Public Use
  Company Number: JP-PFM-2016-03053

PATIENT
  Age: 20 Month
  Sex: Female

DRUGS (11)
  1. HEMANGIOL [Suspect]
     Active Substance: PROPRANOLOL HYDROCHLORIDE
     Indication: INFANTILE HAEMANGIOMA
     Dosage: 1.2 ML, BID (2/DAY)
     Route: 048
     Dates: start: 20161028, end: 20161103
  2. NIPOLAZIN [Concomitant]
     Indication: RHINORRHOEA
     Dosage: UNK
     Route: 048
     Dates: start: 20161031
  3. TOSUFLOXACIN TOSILATE [Concomitant]
     Active Substance: TOSUFLOXACIN TOSYLATE
     Indication: COUGH
     Dosage: UNK
     Route: 048
     Dates: start: 20161031
  4. AMBROXOL HYDROCHLORIDE [Concomitant]
     Active Substance: AMBROXOL HYDROCHLORIDE
     Indication: COUGH
     Dosage: UNK
     Route: 048
     Dates: start: 20161031
  5. ASVERIN (TIPEPIDINE HIBENZATE) [Concomitant]
     Active Substance: TIPEPIDINE HIBENZATE
     Indication: COUGH
     Dosage: UNK
     Route: 048
     Dates: start: 20161031
  6. NIPOLAZIN [Concomitant]
     Indication: COUGH
  7. HOKUNALIN [Concomitant]
     Active Substance: TULOBUTEROL
     Indication: RHINORRHOEA
  8. AMBROXOL HYDROCHLORIDE [Concomitant]
     Active Substance: AMBROXOL HYDROCHLORIDE
     Indication: RHINORRHOEA
  9. HOKUNALIN [Concomitant]
     Active Substance: TULOBUTEROL
     Indication: COUGH
     Dosage: UNK
     Route: 062
     Dates: start: 20161031
  10. TOSUFLOXACIN TOSILATE [Concomitant]
     Active Substance: TOSUFLOXACIN TOSYLATE
     Indication: RHINORRHOEA
  11. ASVERIN (TIPEPIDINE HIBENZATE) [Concomitant]
     Active Substance: TIPEPIDINE HIBENZATE
     Indication: RHINORRHOEA

REACTIONS (6)
  - Blood pressure decreased [Recovered/Resolved]
  - Pyrexia [None]
  - Loss of consciousness [Recovered/Resolved]
  - Viral infection [None]
  - Cyanosis [Recovered/Resolved]
  - Peripheral coldness [None]

NARRATIVE: CASE EVENT DATE: 20161103
